FAERS Safety Report 10050905 (Version 2)
Quarter: 2014Q2

REPORT INFORMATION
  Report Type: Spontaneous
  Country: BR (occurrence: BR)
  Receive Date: 20140401
  Receipt Date: 20140401
  Transmission Date: 20141212
  Serious: Yes (Death)
  Sender: FDA-Public Use
  Company Number: BR-PFIZER INC-2013130919

PATIENT
  Age: 61 Year
  Sex: Male
  Weight: 84 kg

DRUGS (8)
  1. SUTENT [Suspect]
     Indication: RENAL CELL CARCINOMA
     Dosage: 50 MG, UNK
     Route: 048
     Dates: start: 201202
  2. SUTENT [Suspect]
     Dosage: 37.5 MG, ONE TABLET ONCE DAILY, CYCLIC (CYCLE 4 PER 2)
     Route: 048
     Dates: start: 20120201
  3. SUTENT [Suspect]
     Dosage: 25 MG, CYLE 4X2
     Route: 048
     Dates: start: 20120201
  4. CALCIUM [Concomitant]
     Indication: BONE DISORDER
     Dosage: MONTHLY
  5. FLUCONAZOLE [Concomitant]
     Dosage: STRENGTH 75 MG, 1X/DAY
  6. ATENOLOL [Concomitant]
     Dosage: UNSPECIFIED DOSAGE, ONCE A DAY
  7. OMEPRAZOLE [Concomitant]
     Dosage: UNK
  8. ENALAPRIL MALEATE W/HYDROCHLOROTIAZIDE [Concomitant]
     Dosage: UNK

REACTIONS (10)
  - Death [Fatal]
  - Wound [Not Recovered/Not Resolved]
  - Diarrhoea [Unknown]
  - Decreased appetite [Not Recovered/Not Resolved]
  - Wound [Not Recovered/Not Resolved]
  - Fatigue [Not Recovered/Not Resolved]
  - Myalgia [Not Recovered/Not Resolved]
  - Blood pressure increased [Not Recovered/Not Resolved]
  - Fungal infection [Not Recovered/Not Resolved]
  - Oropharyngeal pain [Not Recovered/Not Resolved]
